FAERS Safety Report 8262733-9 (Version None)
Quarter: 2012Q2

REPORT INFORMATION
  Report Type: 
  Country: None (occurrence: None)
  Receive Date: 20120405
  Receipt Date: 20120329
  Transmission Date: 20120825
  Serious: No
  Sender: FDA-Public Use
  Company Number: US-BAYER-2012-032911

PATIENT
  Age: 81 Year
  Sex: Female
  Weight: 94 kg

DRUGS (6)
  1. OMEPRAZOLE [Concomitant]
  2. GLYBURIDE [Concomitant]
  3. LOSARTAN POTASSIUM [Concomitant]
  4. HYDROCODONE [Concomitant]
  5. ALEVE (CAPLET) [Suspect]
     Indication: ARTHRITIS
     Dosage: 2 TABLETS EVERY 4 HOURS - 130 COUNT
     Route: 048
     Dates: start: 20120326, end: 20120328
  6. VITAMIN D [Concomitant]

REACTIONS (1)
  - DIZZINESS [None]
